FAERS Safety Report 16463509 (Version 1)
Quarter: 2019Q2

REPORT INFORMATION
  Report Type: Spontaneous
  Country: FR (occurrence: FR)
  Receive Date: 20190621
  Receipt Date: 20190621
  Transmission Date: 20190711
  Serious: Yes (Hospitalization, Other)
  Sender: FDA-Public Use
  Company Number: FR-009507513-1810FRA004051

PATIENT
  Age: 70 Year
  Sex: Female
  Weight: 92 kg

DRUGS (17)
  1. EXFORGE [Concomitant]
     Active Substance: AMLODIPINE BESYLATE\VALSARTAN
     Indication: HYPERTENSION
     Dosage: 1 TABLET, QD
     Route: 048
  2. XGEVA [Concomitant]
     Active Substance: DENOSUMAB
     Indication: METASTASES TO BONE
     Dosage: UNK
     Dates: start: 20170306
  3. KEYTRUDA [Suspect]
     Active Substance: PEMBROLIZUMAB
     Indication: METASTATIC MALIGNANT MELANOMA
     Dosage: 2 MILLIGRAM/KILOGRAM, EVERY 3 WEEKS
     Route: 042
     Dates: start: 20170213, end: 20170529
  4. KARDEGIC [Concomitant]
     Active Substance: ASPIRIN DL-LYSINE
     Indication: THROMBOSIS PROPHYLAXIS
     Dosage: 75 MILLIGRAM, QD
     Route: 048
  5. ATARAX [Concomitant]
     Active Substance: HYDROXYZINE HYDROCHLORIDE
     Indication: ECZEMA
     Dosage: 50 MILLIGRAM, QD
     Route: 048
     Dates: start: 20170306
  6. METFORMIN [Concomitant]
     Active Substance: METFORMIN HYDROCHLORIDE
     Indication: TYPE 1 DIABETES MELLITUS
     Dosage: 1000 MG, TWICE A DAY
     Route: 048
  7. LIPIKAR [Concomitant]
     Active Substance: COSMETICS
     Indication: ECZEMA
     Dosage: UNK
     Dates: start: 20010419
  8. ATENOLOL. [Concomitant]
     Active Substance: ATENOLOL
     Indication: HYPERTENSION
     Dosage: 50 MILLIGRAM, QD
     Route: 048
  9. KLIPAL [Concomitant]
     Active Substance: ACETAMINOPHEN\CODEINE PHOSPHATE
     Indication: PAIN IN EXTREMITY
  10. KLIPAL [Concomitant]
     Active Substance: ACETAMINOPHEN\CODEINE PHOSPHATE
     Indication: BACK PAIN
     Dosage: 600 MILLIGRAM, BID
     Route: 048
  11. PANTOPRAZOLE [Concomitant]
     Active Substance: PANTOPRAZOLE
     Dosage: 20 MILLIGRAM, QD
     Route: 048
  12. KESTIN [Concomitant]
     Active Substance: EBASTINE
     Indication: ECZEMA
     Dosage: 20 MILLIGRAM, QD
     Route: 048
     Dates: start: 20170327
  13. VESICARE [Concomitant]
     Active Substance: SOLIFENACIN SUCCINATE
     Dosage: 5 MILLIGRAM, QD
     Route: 048
  14. UVEDOSE [Concomitant]
     Active Substance: CHOLECALCIFEROL
     Indication: DRUG TOXICITY PROPHYLAXIS
     Dosage: 100 000 IU, EVERY 3 MONTHS
     Route: 048
     Dates: start: 20170306
  15. DIPROLENE [Concomitant]
     Active Substance: BETAMETHASONE DIPROPIONATE
     Indication: ECZEMA
     Dosage: 1 APPLICATION, QD
     Dates: start: 20170327
  16. HUMALOG [Concomitant]
     Active Substance: INSULIN LISPRO
     Indication: TYPE 1 DIABETES MELLITUS
     Dosage: 50 INTERNATIONAL UNIT, BID
     Route: 058
  17. BROMAZEPAM [Concomitant]
     Active Substance: BROMAZEPAM
     Dosage: 0.5 TABLET, BID
     Route: 048

REACTIONS (6)
  - Lichenoid keratosis [Recovered/Resolved]
  - Hypothyroidism [Recovered/Resolved]
  - Immune-mediated adverse reaction [Recovered/Resolved]
  - Mucosal inflammation [Recovered/Resolved]
  - Muscle injury [Recovered/Resolved]
  - Pulmonary sarcoidosis [Recovered/Resolved]

NARRATIVE: CASE EVENT DATE: 2017
